FAERS Safety Report 8250650-X (Version None)
Quarter: 2012Q2

REPORT INFORMATION
  Report Type: 
  Country: None (occurrence: None)
  Receive Date: 20120402
  Receipt Date: 20120319
  Transmission Date: 20120825
  Serious: Yes (Death)
  Sender: FDA-Public Use
  Company Number: FR-ROCHE-1046707

PATIENT
  Sex: Male

DRUGS (11)
  1. METHOTREXATE [Suspect]
     Indication: DIFFUSE LARGE B-CELL LYMPHOMA
     Route: 042
     Dates: start: 20120204
  2. VINCRISTINE [Suspect]
     Indication: DIFFUSE LARGE B-CELL LYMPHOMA
     Route: 042
     Dates: start: 20120204
  3. PREDNISOLONE [Concomitant]
     Dosage: 50 MG TWICE
  4. LEUCOVORIN CALCIUM [Concomitant]
  5. DOXORUBICIN HCL [Suspect]
     Indication: DIFFUSE LARGE B-CELL LYMPHOMA
     Route: 042
     Dates: start: 20120205
  6. LASIX [Concomitant]
     Route: 042
  7. METHOTREXATE [Suspect]
     Route: 037
  8. MABTHERA [Suspect]
     Indication: DIFFUSE LARGE B-CELL LYMPHOMA
     Route: 042
     Dates: start: 20120202
  9. CYCLOPHOSPHAMIDE [Suspect]
     Indication: DIFFUSE LARGE B-CELL LYMPHOMA
     Route: 042
     Dates: start: 20120205, end: 20120207
  10. ROCEPHIN [Concomitant]
     Dates: start: 20120202
  11. HYDROCORTISONE [Concomitant]

REACTIONS (2)
  - HEPATITIS FULMINANT [None]
  - TOXIC EPIDERMAL NECROLYSIS [None]
